FAERS Safety Report 20707401 (Version 1)
Quarter: 2022Q2

REPORT INFORMATION
  Report Type: Spontaneous
  Country: CN (occurrence: None)
  Receive Date: 20220413
  Receipt Date: 20220413
  Transmission Date: 20220721
  Serious: Yes (Hospitalization)
  Sender: FDA-Public Use
  Company Number: 2022A141979

PATIENT
  Age: 28562 Day
  Sex: Male
  Weight: 56 kg

DRUGS (10)
  1. QUETIAPINE FUMARATE [Suspect]
     Active Substance: QUETIAPINE FUMARATE
     Indication: Hallucination, visual
     Route: 048
     Dates: start: 20220327, end: 20220328
  2. QUETIAPINE FUMARATE [Suspect]
     Active Substance: QUETIAPINE FUMARATE
     Indication: Mental disorder
     Route: 048
     Dates: start: 20220327, end: 20220328
  3. QUETIAPINE FUMARATE [Suspect]
     Active Substance: QUETIAPINE FUMARATE
     Indication: Hallucination, visual
     Dosage: 6.25MG UNKNOWN
     Route: 048
     Dates: start: 20220402
  4. QUETIAPINE FUMARATE [Suspect]
     Active Substance: QUETIAPINE FUMARATE
     Indication: Mental disorder
     Dosage: 6.25MG UNKNOWN
     Route: 048
     Dates: start: 20220402
  5. RISPERIDONE [Suspect]
     Active Substance: RISPERIDONE
     Indication: Hallucination, visual
     Route: 048
     Dates: start: 20220310
  6. RISPERIDONE [Suspect]
     Active Substance: RISPERIDONE
     Indication: Mental disorder
     Route: 048
     Dates: start: 20220310
  7. RISPERIDONE [Suspect]
     Active Substance: RISPERIDONE
     Indication: Hallucination, visual
     Route: 048
     Dates: start: 20220321, end: 20220327
  8. RISPERIDONE [Suspect]
     Active Substance: RISPERIDONE
     Indication: Mental disorder
     Route: 048
     Dates: start: 20220321, end: 20220327
  9. RISPERIDONE [Suspect]
     Active Substance: RISPERIDONE
     Indication: Hallucination, visual
     Route: 048
     Dates: start: 20220325, end: 20220327
  10. RISPERIDONE [Suspect]
     Active Substance: RISPERIDONE
     Indication: Mental disorder
     Route: 048
     Dates: start: 20220325, end: 20220327

REACTIONS (4)
  - Speech disorder [Unknown]
  - Salivary hypersecretion [Unknown]
  - Choking [Unknown]
  - Dysphagia [Unknown]

NARRATIVE: CASE EVENT DATE: 20220328
